FAERS Safety Report 10899576 (Version 1)
Quarter: 2015Q1

REPORT INFORMATION
  Report Type: Report from Study
  Country: JP (occurrence: JP)
  Receive Date: 20150309
  Receipt Date: 20150309
  Transmission Date: 20150721
  Serious: Yes (Hospitalization)
  Sender: FDA-Public Use
  Company Number: JP-ABBVIE-14P-087-1315597-00

PATIENT
  Age: 16 Month
  Sex: Male
  Weight: 8.9 kg

DRUGS (9)
  1. SYNAGIS [Suspect]
     Active Substance: PALIVIZUMAB
     Indication: PRODUCT USED FOR UNKNOWN INDICATION
     Route: 030
     Dates: start: 20140219, end: 20140219
  2. METHOTREXATE [Suspect]
     Active Substance: METHOTREXATE
     Route: 024
     Dates: start: 20140225
  3. ENDOXAN [Suspect]
     Active Substance: CYCLOPHOSPHAMIDE
     Indication: PRODUCT USED FOR UNKNOWN INDICATION
     Route: 065
  4. METHOTREXATE [Suspect]
     Active Substance: METHOTREXATE
     Route: 024
     Dates: start: 20140204
  5. SYNAGIS [Suspect]
     Active Substance: PALIVIZUMAB
     Route: 030
     Dates: start: 20140318, end: 20140318
  6. METHOTREXATE [Suspect]
     Active Substance: METHOTREXATE
     Route: 024
     Dates: start: 20140321
  7. METHOTREXATE [Suspect]
     Active Substance: METHOTREXATE
     Route: 024
     Dates: start: 20140408
  8. METHOTREXATE [Suspect]
     Active Substance: METHOTREXATE
     Indication: PRODUCT USED FOR UNKNOWN INDICATION
     Route: 024
     Dates: start: 20140124
  9. LEUNASE [Suspect]
     Active Substance: ASPARAGINASE
     Indication: PRODUCT USED FOR UNKNOWN INDICATION
     Dosage: 2100K/DAY
     Route: 050

REACTIONS (6)
  - Acute lymphocytic leukaemia [Recovered/Resolved]
  - Febrile neutropenia [Recovering/Resolving]
  - Antithrombin III decreased [Recovered/Resolved]
  - Liver disorder [Recovering/Resolving]
  - Upper respiratory tract inflammation [Recovering/Resolving]
  - Pneumonia [Recovering/Resolving]

NARRATIVE: CASE EVENT DATE: 20140302
